FAERS Safety Report 8858876 (Version 1)
Quarter: 2012Q4

REPORT INFORMATION
  Report Type: 
  Country: GB (occurrence: GB)
  Receive Date: 20121024
  Receipt Date: 20121024
  Transmission Date: 20130627
  Serious: Yes (Other)
  Sender: FDA-Public Use
  Company Number: GB-009507513-1210GBR009353

PATIENT
  Age: 5 Year
  Sex: Male
  Weight: 23 kg

DRUGS (11)
  1. INVANZ [Suspect]
     Dosage: 300 mg, UNK
     Route: 042
     Dates: start: 20120924
  2. CREON (PANCRELIPASE) [Concomitant]
  3. ACETYLCYSTEINE [Concomitant]
  4. NYSTAN [Concomitant]
  5. OMEPRAZOLE [Concomitant]
  6. POTASSIUM CHLORIDE [Concomitant]
  7. PREDNISOLONE [Concomitant]
  8. SODIUM CHLORIDE [Concomitant]
  9. SUCRALFATE [Concomitant]
  10. URSODIOL [Concomitant]
  11. WARFARIN [Concomitant]
     Dosage: 8 mg, UNK
     Route: 048

REACTIONS (1)
  - International normalised ratio increased [Unknown]
